FAERS Safety Report 7999091-0 (Version None)
Quarter: 2011Q4

REPORT INFORMATION
  Report Type: 
  Country: None (occurrence: None)
  Receive Date: 20111221
  Receipt Date: 20111213
  Transmission Date: 20120403
  Serious: Yes (Hospitalization)
  Sender: FDA-Public Use
  Company Number: CA-ABBOTT-11P-028-0883487-00

PATIENT
  Sex: Male
  Weight: 72.64 kg

DRUGS (4)
  1. STEMETIL [Concomitant]
     Indication: CROHN'S DISEASE
     Route: 048
  2. SULFASALAZINE [Concomitant]
     Indication: CROHN'S DISEASE
     Route: 048
  3. MAXERAN [Concomitant]
     Indication: CROHN'S DISEASE
     Route: 048
  4. KALETRA [Suspect]
     Indication: ANTIRETROVIRAL THERAPY
     Dosage: 200/50MG
     Route: 048
     Dates: start: 20110707

REACTIONS (1)
  - HOSPITALISATION [None]
